FAERS Safety Report 7626715-X (Version None)
Quarter: 2011Q3

REPORT INFORMATION
  Report Type: 
  Country: None (occurrence: None)
  Receive Date: 20110714
  Receipt Date: 20110707
  Transmission Date: 20111222
  Serious: Yes (Other)
  Sender: FDA-Public Use
  Company Number: 20096790

PATIENT
  Sex: Female

DRUGS (3)
  1. LIORESAL [Suspect]
     Indication: MUSCLE SPASTICITY
     Dosage: 50 MCG, DAILY, INTRATHECAL
     Route: 037
  2. PRIALT [Concomitant]
  3. DIALUDID [Concomitant]

REACTIONS (14)
  - PROCEDURAL HEADACHE [None]
  - DIZZINESS [None]
  - NAUSEA [None]
  - VOMITING [None]
  - AGITATION [None]
  - INSOMNIA [None]
  - CONDITION AGGRAVATED [None]
  - RESTLESSNESS [None]
  - LIVER DISORDER [None]
  - PAIN [None]
  - HEADACHE [None]
  - PAROSMIA [None]
  - HERPES ZOSTER [None]
  - MUSCLE SPASTICITY [None]
